FAERS Safety Report 6448616-5 (Version None)
Quarter: 2009Q4

REPORT INFORMATION
  Report Type: 
  Country: None (occurrence: None)
  Receive Date: 20091120
  Receipt Date: 20091112
  Transmission Date: 20100525
  Serious: Yes (Other)
  Sender: FDA-Public Use
  Company Number: US-ABBOTT-09P-163-0606783-00

PATIENT
  Sex: Female
  Weight: 34.05 kg

DRUGS (10)
  1. HUMIRA [Suspect]
     Indication: CROHN'S DISEASE
     Dates: start: 20070101
  2. METHOTREXATE [Suspect]
     Indication: CROHN'S DISEASE
     Dates: start: 20080101
  3. MARINOL [Suspect]
     Indication: NAUSEA
  4. CIPRO [Concomitant]
     Indication: CROHN'S DISEASE
  5. FLAGYL [Concomitant]
     Indication: DISBACTERIOSIS
  6. FOLIC ACID [Concomitant]
     Indication: DRUG USE FOR UNKNOWN INDICATION
  7. REMERON [Concomitant]
     Indication: APPETITE DISORDER
  8. MORPHINE [Concomitant]
     Indication: PAIN
  9. MORPHINE [Concomitant]
     Indication: DIARRHOEA
  10. ZOFRAN [Concomitant]
     Indication: NAUSEA

REACTIONS (9)
  - DEVICE MALFUNCTION [None]
  - FATIGUE [None]
  - FEELING ABNORMAL [None]
  - HAEMOCHROMATOSIS [None]
  - HEPATIC ENZYME INCREASED [None]
  - INCORRECT DOSE ADMINISTERED [None]
  - INJECTION SITE PAIN [None]
  - MOVEMENT DISORDER [None]
  - NAUSEA [None]
